FAERS Safety Report 4397991-4 (Version None)
Quarter: 2004Q3

REPORT INFORMATION
  Report Type: 
  Country: None (occurrence: None)
  Receive Date: 20040713
  Receipt Date: 20040629
  Transmission Date: 20050211
  Serious: Yes (Hospitalization)
  Sender: FDA-Public Use
  Company Number: 04H-028-0265612-00

PATIENT
  Age: 66 Year
  Sex: Male

DRUGS (2)
  1. HEPARIN LOCK FLUSH [Suspect]
     Indication: INTRAVENOUS CATHETER MANAGEMENT
     Dosage: {100 U, ^ROUTINE FLUSHES^ OR ART. LINE, INTRA-ARTERIAL; DURING SURGERY
     Route: 013
  2. HEPARIN SODIUM [Suspect]
     Indication: DEEP VEIN THROMBOSIS
     Dosage: 5000 UNIT, BOLUS DOSE; POST F DAY 9

REACTIONS (5)
  - DEEP VEIN THROMBOSIS [None]
  - HEPARIN-INDUCED THROMBOCYTOPENIA [None]
  - HYPERHIDROSIS [None]
  - IMMUNE SYSTEM DISORDER [None]
  - PYREXIA [None]
